FAERS Safety Report 6830864-3 (Version None)
Quarter: 2010Q3

REPORT INFORMATION
  Report Type: 
  Country: None (occurrence: None)
  Receive Date: 20100709
  Receipt Date: 20100709
  Transmission Date: 20110219
  Serious: Yes (Life-Threatening, Hospitalization)
  Sender: FDA-Public Use
  Company Number: None

PATIENT
  Age: 75 Year
  Sex: Male

DRUGS (3)
  1. DIGOXIN [Suspect]
     Indication: ATRIAL FIBRILLATION
     Dosage: 0.125 MG EVERY DAY PO
     Route: 048
     Dates: start: 20040803, end: 20100411
  2. DIGOXIN [Suspect]
     Indication: CARDIAC FAILURE CONGESTIVE
     Dosage: 0.125 MG EVERY DAY PO
     Route: 048
     Dates: start: 20040803, end: 20100411
  3. SPIRONOLACTONE [Suspect]
     Dosage: 25 MG EVERY DAY PO
     Route: 048
     Dates: start: 20040624, end: 20100411

REACTIONS (3)
  - BLOOD POTASSIUM INCREASED [None]
  - ELECTROCARDIOGRAM ABNORMAL [None]
  - THERAPEUTIC AGENT TOXICITY [None]
